FAERS Safety Report 9633546 (Version 1)
Quarter: 2013Q4

REPORT INFORMATION
  Report Type: Report from Study
  Country: EC (occurrence: EC)
  Receive Date: 20131021
  Receipt Date: 20131021
  Transmission Date: 20140711
  Serious: Yes (Other)
  Sender: FDA-Public Use
  Company Number: PHHY2013EC117872

PATIENT
  Sex: Female

DRUGS (4)
  1. DIOVAN HCT [Suspect]
     Indication: HYPERTENSION
     Dosage: 1 DF (160MG VALS/ 12.5MG HYDR), QD
     Route: 048
     Dates: start: 2011
  2. DAFLON [Concomitant]
     Indication: VARICOSE VEIN
     Dosage: 500 MG, BID
     Route: 048
     Dates: start: 2011
  3. AMLODIPINE [Concomitant]
     Dosage: 0.25 DF (5MG), QD
     Route: 048
  4. CALCEFOR                           /02387201/ [Concomitant]
     Indication: VARICOSE VEIN
     Dosage: UKN, BID
     Dates: start: 2011

REACTIONS (2)
  - Infarction [Recovered/Resolved]
  - Irritability [Unknown]
